FAERS Safety Report 10956699 (Version 1)
Quarter: 2015Q1

REPORT INFORMATION
  Report Type: Spontaneous
  Country: SE (occurrence: SE)
  Receive Date: 20150326
  Receipt Date: 20150326
  Transmission Date: 20150721
  Serious: Yes (Other)
  Sender: FDA-Public Use
  Company Number: SE-PFIZER INC-2015105504

PATIENT
  Sex: Female

DRUGS (2)
  1. XANOR [Suspect]
     Active Substance: ALPRAZOLAM
     Indication: ANXIETY
     Dosage: 6 MG, DAILY
     Dates: start: 1982
  2. XANOR [Suspect]
     Active Substance: ALPRAZOLAM
     Dosage: SOMETIMES TAKES 8 MG DAILY

REACTIONS (4)
  - Blood cortisol increased [Unknown]
  - Nervous system disorder [Not Recovered/Not Resolved]
  - Cerebrovascular accident [Unknown]
  - Intentional product misuse [Unknown]

NARRATIVE: CASE EVENT DATE: 1994
